FAERS Safety Report 5720711-5 (Version None)
Quarter: 2008Q2

REPORT INFORMATION
  Report Type: 
  Country: None (occurrence: None)
  Receive Date: 20080429
  Receipt Date: 20080415
  Transmission Date: 20081010
  Serious: Yes (Hospitalization)
  Sender: FDA-Public Use
  Company Number: FR-JNJFOC-20080406742

PATIENT
  Sex: Male

DRUGS (3)
  1. ULTRACET [Suspect]
     Indication: DRUG USE FOR UNKNOWN INDICATION
     Route: 048
  2. KETOPROFEN [Suspect]
     Indication: BONE PAIN
     Route: 048
  3. MIOREL [Suspect]
     Indication: DRUG USE FOR UNKNOWN INDICATION
     Route: 048

REACTIONS (2)
  - COLITIS ISCHAEMIC [None]
  - WEIGHT DECREASED [None]
